FAERS Safety Report 9774331 (Version 1)
Quarter: 2013Q4

REPORT INFORMATION
  Report Type: Report from Study
  Country: GB (occurrence: GB)
  Receive Date: 20131220
  Receipt Date: 20131220
  Transmission Date: 20140711
  Serious: Yes (Hospitalization)
  Sender: FDA-Public Use
  Company Number: GB-CELGENEUS-167-50794-13121553

PATIENT
  Age: 68 Year
  Sex: Female

DRUGS (1)
  1. VIDAZA [Suspect]
     Indication: ACUTE MYELOID LEUKAEMIA
     Dosage: 135 MILLIGRAM
     Route: 058
     Dates: start: 20130819, end: 20131022

REACTIONS (1)
  - Hypercalcaemia [Not Recovered/Not Resolved]
